FAERS Safety Report 5274150-4 (Version None)
Quarter: 2007Q1

REPORT INFORMATION
  Report Type: 
  Country: None (occurrence: None)
  Receive Date: 20070323
  Receipt Date: 20070315
  Transmission Date: 20070707
  Serious: Yes (Life-Threatening, Hospitalization, Other)
  Sender: FDA-Public Use
  Company Number: BE-SHR-BE-SHR-03-007174

PATIENT
  Age: 80 Year
  Sex: Male

DRUGS (2)
  1. MAGNEVIST [Suspect]
     Dosage: UNK, 1 DOSE
     Route: 042
     Dates: start: 20030505, end: 20030505
  2. ASAFLOW [Concomitant]

REACTIONS (3)
  - BRONCHOSPASM [None]
  - CARDIAC ARREST [None]
  - MYOCARDIAL ISCHAEMIA [None]
